FAERS Safety Report 23300110 (Version 3)
Quarter: 2024Q1

REPORT INFORMATION
  Report Type: Spontaneous
  Country: PR (occurrence: US)
  Receive Date: 20231215
  Receipt Date: 20240219
  Transmission Date: 20240410
  Serious: No
  Sender: FDA-Public Use
  Company Number: PR-VIIV HEALTHCARE LIMITED-US2023AMR173445

PATIENT
  Age: 53 Year
  Sex: Male

DRUGS (5)
  1. CABENUVA [Suspect]
     Active Substance: CABOTEGRAVIR\RILPIVIRINE
     Indication: HIV infection
     Dosage: 3 ML, Q2M (600 MG/900 MG INJ)
     Route: 030
     Dates: start: 20230718
  2. CABENUVA [Suspect]
     Active Substance: CABOTEGRAVIR\RILPIVIRINE
  3. CABENUVA [Suspect]
     Active Substance: CABOTEGRAVIR\RILPIVIRINE
  4. CABENUVA [Suspect]
     Active Substance: CABOTEGRAVIR\RILPIVIRINE
     Indication: HIV infection
     Dosage: UNK UNK, Q2M 3ML VIAL 600 MG
     Route: 030
  5. FINASTERIDE [Concomitant]
     Active Substance: FINASTERIDE
     Indication: Product used for unknown indication
     Dosage: UNK

REACTIONS (2)
  - Cardiac disorder [Recovered/Resolved]
  - Blood HIV RNA increased [Not Recovered/Not Resolved]

NARRATIVE: CASE EVENT DATE: 20231205
